FAERS Safety Report 4397597-7 (Version None)
Quarter: 2004Q3

REPORT INFORMATION
  Report Type: 
  Country: None (occurrence: None)
  Receive Date: 20040708
  Receipt Date: 20040628
  Transmission Date: 20050211
  Serious: Yes (Other)
  Sender: FDA-Public Use
  Company Number: JP-JNJFOC-20040602222

PATIENT
  Age: 87 Year
  Sex: Female

DRUGS (7)
  1. LEVOFLOXACIN [Suspect]
     Indication: ASTHMA
     Dosage: 500 MG
  2. ENALAPRIL MALEATE [Concomitant]
  3. HYDROCHLOROTHIAZIDE (HYDROCHLOROTHIAZIDE0 [Concomitant]
  4. DOXAZOSIN (DOXAZOSIN) [Concomitant]
  5. DOXAZOSIN (DOXAZOSIN) [Concomitant]
  6. TERBUTALINE 9TERBUTALINE) [Concomitant]
  7. BUDESONIDE (BUDESONIDE) [Concomitant]

REACTIONS (3)
  - BLOOD URIC ACID INCREASED [None]
  - INFLAMMATION [None]
  - MYALGIA [None]
